FAERS Safety Report 8827451 (Version 1)
Quarter: 2012Q4

REPORT INFORMATION
  Report Type: 
  Country: US (occurrence: US)
  Receive Date: 20121005
  Receipt Date: 20121005
  Transmission Date: 20130627
  Serious: No
  Sender: FDA-Public Use
  Company Number: US-BRISTOL-MYERS SQUIBB COMPANY-16814535

PATIENT
  Age: 73 Year
  Sex: Female

DRUGS (1)
  1. AVAPRO [Suspect]

REACTIONS (3)
  - Hypertension [Not Recovered/Not Resolved]
  - Gastric hypertonia [Not Recovered/Not Resolved]
  - Palpitations [Not Recovered/Not Resolved]
